FAERS Safety Report 4350176-X (Version None)
Quarter: 2004Q2

REPORT INFORMATION
  Report Type: 
  Country: None (occurrence: None)
  Receive Date: 20040426
  Receipt Date: 20040415
  Transmission Date: 20050107
  Serious: Yes (Death, Other)
  Sender: FDA-Public Use
  Company Number: 2004-04-0649

PATIENT
  Age: 65 Year
  Sex: Male

DRUGS (4)
  1. INTRON A [Suspect]
     Indication: MALIGNANT MELANOMA STAGE III
     Dosage: 30 MIU INTRAVENOUS
     Route: 042
     Dates: start: 20040329, end: 20040401
  2. QUINAPRIL HCL [Concomitant]
  3. ACETAMINOPHEN [Concomitant]
  4. LIMICAN [Concomitant]

REACTIONS (5)
  - CARDIAC ARREST [None]
  - METABOLIC ACIDOSIS [None]
  - RESPIRATORY ARREST [None]
  - SHOCK [None]
  - TACHYCARDIA [None]
